FAERS Safety Report 8181890 (Version 10)
Quarter: 2012Q4

REPORT INFORMATION
  Report Type: 
  Country: US (occurrence: US)
  Receive Date: 20111014
  Receipt Date: 20120917
  Transmission Date: 20130627
  Serious: Yes (Hospitalization, Disabling, Other)
  Sender: FDA-Public Use
  Company Number: US-009507513-1110USA01563

PATIENT

DRUGS (5)
  1. FOSAMAX [Suspect]
     Indication: OSTEOPENIA
     Dosage: UNK
     Route: 048
     Dates: start: 2003, end: 20100120
  2. FOSAMAX [Suspect]
     Dosage: 70 mg, QW
     Route: 048
     Dates: start: 20040911, end: 20100120
  3. FOSAMAX [Suspect]
     Indication: OSTEOPENIA
     Dosage: 70 mg, UNK
     Route: 048
     Dates: start: 20080609
  4. ALENDRONATE SODIUM [Suspect]
     Dosage: 70 mg, UNK
     Route: 048
     Dates: start: 20081218
  5. SYNTHROID [Concomitant]
     Indication: HYPOTHYROIDISM
     Dosage: 50 Microgram, UNK
     Route: 048
     Dates: start: 1994

REACTIONS (78)
  - Sarcoidosis [Unknown]
  - Femur fracture [Unknown]
  - Thyroid disorder [Unknown]
  - Thyroidectomy [Unknown]
  - Wrist fracture [Unknown]
  - Surgery [Unknown]
  - Appendix disorder [Unknown]
  - Adverse event [Unknown]
  - Peroneal nerve palsy [Recovering/Resolving]
  - Tonsillar disorder [Unknown]
  - Uterine disorder [Unknown]
  - Convulsion [Unknown]
  - Femur fracture [Unknown]
  - Anxiety [Not Recovered/Not Resolved]
  - Pain [Not Recovered/Not Resolved]
  - Tooth disorder [Unknown]
  - Blood cholesterol increased [Unknown]
  - Fatigue [Unknown]
  - Palpitations [Unknown]
  - Asthenia [Unknown]
  - Depression [Not Recovered/Not Resolved]
  - Fracture [Unknown]
  - Nasal disorder [Unknown]
  - Migraine [Not Recovered/Not Resolved]
  - Fall [Unknown]
  - Spinal osteoarthritis [Unknown]
  - Compression fracture [Not Recovered/Not Resolved]
  - Bursitis [Unknown]
  - Intervertebral disc disorder [Unknown]
  - Mediastinal disorder [Unknown]
  - Osteoarthritis [Unknown]
  - Pulmonary mass [Unknown]
  - Intervertebral disc disorder [Unknown]
  - Post procedural haematoma [Unknown]
  - Haemoglobin abnormal [Unknown]
  - Gait disturbance [Unknown]
  - Muscle strain [Unknown]
  - Foot deformity [Unknown]
  - Bunion [Unknown]
  - Foot fracture [Unknown]
  - Ovarian cyst [Unknown]
  - Hypertension [Unknown]
  - Nasal polyps [Unknown]
  - Dyspnoea exertional [Unknown]
  - Dysarthria [Unknown]
  - Herpes zoster [Unknown]
  - Mitral valve incompetence [Unknown]
  - Tricuspid valve incompetence [Unknown]
  - Breast cyst [Unknown]
  - Insomnia [Unknown]
  - Rotator cuff syndrome [Unknown]
  - Weight increased [Unknown]
  - Attention deficit/hyperactivity disorder [Unknown]
  - Osteoarthritis [Unknown]
  - Joint injury [Unknown]
  - Intervertebral disc protrusion [Unknown]
  - Lumbar radiculopathy [Unknown]
  - Osteoma [Unknown]
  - Pain in extremity [Unknown]
  - Conjunctivitis infective [Unknown]
  - Rheumatic disorder [Unknown]
  - Oedema peripheral [Unknown]
  - Back pain [Recovering/Resolving]
  - Muscle strain [Unknown]
  - Face oedema [Unknown]
  - Oedema peripheral [Unknown]
  - Diarrhoea [Unknown]
  - Abdominal pain upper [Unknown]
  - Pain [Unknown]
  - Bone disorder [Unknown]
  - Abdominal pain [Unknown]
  - Adrenal adenoma [Unknown]
  - Hyperlipidaemia [Unknown]
  - Increased tendency to bruise [Unknown]
  - Muscular weakness [Unknown]
  - Cushing^s syndrome [Unknown]
  - Nephrolithiasis [Unknown]
  - Lymphadenopathy [Unknown]
